FAERS Safety Report 24364773 (Version 4)
Quarter: 2024Q4

REPORT INFORMATION
  Report Type: Spontaneous
  Country: FR (occurrence: FR)
  Receive Date: 20240926
  Receipt Date: 20241111
  Transmission Date: 20250115
  Serious: Yes (Hospitalization, Other)
  Sender: AUROBINDO
  Company Number: FR-AFSSAPS-NT2024001170

PATIENT
  Age: 11 Year
  Sex: Female
  Weight: 26.4 kg

DRUGS (18)
  1. LANSOPRAZOLE [Suspect]
     Active Substance: LANSOPRAZOLE
     Indication: Gastric ulcer
     Dosage: 30 MILLIGRAM, ONCE A DAY(15 MG 2 TIMES A DAY)
     Route: 048
  2. AMLODIPINE [Suspect]
     Active Substance: AMLODIPINE BESYLATE
     Indication: Hypertension
     Dosage: 0.5 MILLIGRAM(0.5 DAYS)
     Route: 048
  3. URSODIOL [Suspect]
     Active Substance: URSODIOL
     Indication: Venoocclusive disease
     Dosage: 300 MILLIGRAM, ONCE A DAY(?150 MG X 2/DAY )
     Route: 048
     Dates: start: 20240705
  4. URSODIOL [Suspect]
     Active Substance: URSODIOL
     Indication: Venoocclusive disease
     Dosage: 300 MILLIGRAM, ONCE A DAY(150 MG 2 TIMES A DAY)
     Route: 048
     Dates: end: 20240705
  5. MICAFUNGIN [Suspect]
     Active Substance: MICAFUNGIN SODIUM
     Indication: Antibiotic prophylaxis
     Dosage: 200 MILLIGRAM, EVERY WEEK(100 MG 2 TIMES A WEEK)
     Route: 065
  6. DOLIPRANE [Suspect]
     Active Substance: ACETAMINOPHEN
     Indication: Pain
     Dosage: UNK
     Route: 048
  7. CYCLOSPORINE [Suspect]
     Active Substance: CYCLOSPORINE
     Indication: Prophylaxis against graft versus host disease
     Dosage: 170 MILLIGRAM, ONCE A DAY(85 MG 2 TIMES A DAY)
     Route: 042
     Dates: start: 20240528
  8. ONDANSETRON [Suspect]
     Active Substance: ONDANSETRON
     Indication: Vomiting
     Dosage: UNK
     Route: 042
  9. CELLCEPT [Suspect]
     Active Substance: MYCOPHENOLATE MOFETIL
     Indication: Prophylaxis against graft versus host disease
     Dosage: 30 MG/KG/DAY, DECREASE FROM 07/23
     Route: 042
     Dates: start: 20240528
  10. CIDOFOVIR [Suspect]
     Active Substance: CIDOFOVIR
     Indication: Adenovirus infection
     Dosage: 1 MG/KG X3/WEEK (D1, D4, D7) FROM 06/21, 5 MG/KG ON 07/10, STOP, RESUME ON 07/26 AT 1 MG/KG
     Route: 042
     Dates: start: 20240621
  11. BACTRIM [Suspect]
     Active Substance: SULFAMETHOXAZOLE\TRIMETHOPRIM
     Indication: Antibiotic prophylaxis
     Dosage: 1800 MILLIGRAM, EVERY WEEK(600 MG 3 TIMES A WEEK)
     Route: 065
  12. VITAMIN K [Concomitant]
     Active Substance: PHYTONADIONE
     Indication: Product used for unknown indication
     Dosage: 10 MILLIGRAM(1WEEK)
     Route: 065
  13. NUBAIN [Concomitant]
     Active Substance: NALBUPHINE HYDROCHLORIDE
     Indication: Product used for unknown indication
     Dosage: UNK( QID)
     Route: 065
  14. CHLORPROMAZINE [Concomitant]
     Active Substance: CHLORPROMAZINE
     Indication: Product used for unknown indication
     Dosage: 7 MILLIGRAM( Q8HR)
     Route: 065
  15. Spasfon [Concomitant]
     Indication: Product used for unknown indication
     Dosage: 40 MILLIGRAM( TID)
     Route: 065
  16. ACYCLOVIR [Concomitant]
     Active Substance: ACYCLOVIR
     Indication: Product used for unknown indication
     Dosage: 250 MILLIGRAM(BID)
     Route: 065
  17. AMITRIPTYLINE [Concomitant]
     Active Substance: AMITRIPTYLINE
     Indication: Product used for unknown indication
     Dosage: 15 MILLIGRAM
     Route: 065
  18. ACUPAN [Concomitant]
     Active Substance: NEFOPAM HYDROCHLORIDE
     Indication: Product used for unknown indication
     Dosage: 7 MILLIGRAM( QID)
     Route: 065

REACTIONS (2)
  - Pancreatitis acute [Recovered/Resolved]
  - Product use in unapproved indication [Recovered/Resolved]

NARRATIVE: CASE EVENT DATE: 20240710
